FAERS Safety Report 23970640 (Version 3)
Quarter: 2024Q3

REPORT INFORMATION
  Report Type: Spontaneous
  Country: US (occurrence: US)
  Receive Date: 20240613
  Receipt Date: 20240801
  Transmission Date: 20241016
  Serious: Yes (Hospitalization, Other)
  Sender: BAXTER
  Company Number: US-BAXTER-2024BAX019134

PATIENT
  Age: 30 Year
  Sex: Female
  Weight: 88.8 kg

DRUGS (6)
  1. CYCLOPHOSPHAMIDE [Suspect]
     Active Substance: CYCLOPHOSPHAMIDE
     Indication: Primary mediastinal large B-cell lymphoma
     Dosage: 750 MG/M2, ONCE PER CYCLE (CYCLIC) (TOTAL 4 DOSES)
     Route: 042
     Dates: start: 20240222, end: 20240424
  2. DOXORUBICIN [Suspect]
     Active Substance: DOXORUBICIN
     Indication: Primary mediastinal large B-cell lymphoma
     Dosage: 50 MG/M2, ONCE PER CYCLE (CYCLIC) (TOTAL 4 DOSES)
     Route: 042
     Dates: start: 20240222, end: 20240424
  3. RITUXIMAB [Suspect]
     Active Substance: RITUXIMAB
     Indication: Primary mediastinal large B-cell lymphoma
     Dosage: 375 MG/M2, ONCE PER CYCLE (CYCLIC) (TOTAL 4 DOSES)
     Route: 042
     Dates: start: 20240222, end: 20240424
  4. BRENTUXIMAB VEDOTIN [Suspect]
     Active Substance: BRENTUXIMAB VEDOTIN
     Indication: Primary mediastinal large B-cell lymphoma
     Dosage: 1.8 MG/KG, ONCE EVERY 21 DAYS (TOTAL 6 DOSES)
     Route: 042
     Dates: start: 20240112, end: 20240424
  5. NIVOLUMAB [Suspect]
     Active Substance: NIVOLUMAB
     Indication: Primary mediastinal large B-cell lymphoma
     Dosage: 240 MG, ONCE EVERY 21 DAYS (TOTAL 6 DOSES), (BMS-936558)
     Route: 042
     Dates: start: 20240112, end: 20240424
  6. PREDNISONE [Suspect]
     Active Substance: PREDNISONE
     Indication: Primary mediastinal large B-cell lymphoma
     Dosage: 100 MG, QD, DAY 1-5 EVERY CYCLE (CYCLIC) (TOTAL 4 DOSES)
     Route: 048
     Dates: start: 20240222, end: 20240424

REACTIONS (3)
  - Febrile neutropenia [Recovered/Resolved]
  - Ill-defined disorder [Recovered/Resolved]
  - Cough [Recovered/Resolved]

NARRATIVE: CASE EVENT DATE: 20240501
